FAERS Safety Report 14408256 (Version 2)
Quarter: 2018Q2

REPORT INFORMATION
  Report Type: Not Available
  Country: US (occurrence: US)
  Receive Date: 20180118
  Receipt Date: 20180510
  Transmission Date: 20180711
  Serious: No
  Sender: FDA-Public Use
  Company Number: US-NEUROCRINE BIOSCIENCES INC.-2017NBI01799

PATIENT
  Age: 66 Year
  Sex: Female

DRUGS (8)
  1. CALCIUM 500 PLUS D [Concomitant]
  2. INGREZZA [Suspect]
     Active Substance: VALBENAZINE
     Indication: TARDIVE DYSKINESIA
     Route: 048
     Dates: start: 20171124, end: 20171130
  3. INGREZZA [Suspect]
     Active Substance: VALBENAZINE
     Route: 048
     Dates: start: 20171201, end: 201712
  4. CETIRIZINE [Concomitant]
     Active Substance: CETIRIZINE HYDROCHLORIDE
  5. LORAZEPAM. [Concomitant]
     Active Substance: LORAZEPAM
  6. ABILIFY [Concomitant]
     Active Substance: ARIPIPRAZOLE
  7. MEGARED OMEGA 3 KRILL OIL [Concomitant]
  8. DOXYCYCLINE. [Concomitant]
     Active Substance: DOXYCYCLINE

REACTIONS (1)
  - Tardive dyskinesia [Recovered/Resolved with Sequelae]

NARRATIVE: CASE EVENT DATE: 201711
